FAERS Safety Report 7206161-3 (Version None)
Quarter: 2010Q4

REPORT INFORMATION
  Report Type: 
  Country: None (occurrence: None)
  Receive Date: 20101229
  Receipt Date: 20101229
  Transmission Date: 20110411
  Serious: Yes (Hospitalization)
  Sender: FDA-Public Use
  Company Number: None

PATIENT
  Age: 70 Year
  Sex: Male

DRUGS (1)
  1. IBUPROFEN [Suspect]
     Indication: BACK PAIN
     Dosage: 800 MG TID PO
     Route: 048
     Dates: start: 20100913, end: 20100922

REACTIONS (2)
  - DYSPNOEA [None]
  - RENAL FAILURE ACUTE [None]
